FAERS Safety Report 4672807-7 (Version None)
Quarter: 2005Q2

REPORT INFORMATION
  Report Type: 
  Country: None (occurrence: None)
  Receive Date: 20050524
  Receipt Date: 20040728
  Transmission Date: 20051028
  Serious: Yes (Other)
  Sender: FDA-Public Use
  Company Number: US-ABBOTT-04P-163-0268401-00

PATIENT
  Sex: Female

DRUGS (3)
  1. HUMIRA [Suspect]
     Indication: RHEUMATOID ARTHRITIS
     Route: 058
     Dates: start: 20031101, end: 20040601
  2. HUMIRA [Suspect]
     Route: 058
     Dates: start: 20040601, end: 20040723
  3. HUMIRA [Suspect]

REACTIONS (3)
  - DYSPHONIA [None]
  - PARKINSONISM [None]
  - URINARY INCONTINENCE [None]
